FAERS Safety Report 21317845 (Version 1)
Quarter: 2022Q3

REPORT INFORMATION
  Report Type: Spontaneous
  Country: US (occurrence: US)
  Receive Date: 20220911
  Receipt Date: 20220911
  Transmission Date: 20221026
  Serious: No
  Sender: FDA-Public Use
  Company Number: US-SANOFI-01031364

PATIENT
  Age: 22 Year
  Sex: Male

DRUGS (4)
  1. DUPIXENT [Suspect]
     Active Substance: DUPILUMAB
     Indication: Dermatitis allergic
     Dosage: 600MG,1X
     Route: 058
     Dates: start: 20220226, end: 20220226
  2. DUPIXENT [Suspect]
     Active Substance: DUPILUMAB
     Dosage: 300 MG, QOW
     Route: 058
     Dates: start: 20220315
  3. NYSTATIN [Suspect]
     Active Substance: NYSTATIN
     Indication: Burning sensation
     Dosage: UNK
     Route: 061
     Dates: start: 2022, end: 2022
  4. NYSTATIN [Suspect]
     Active Substance: NYSTATIN
     Indication: Pain

REACTIONS (6)
  - Burning sensation [Unknown]
  - Condition aggravated [Unknown]
  - Pain [Unknown]
  - Eczema [Unknown]
  - Rash [Unknown]
  - Product use in unapproved indication [Unknown]

NARRATIVE: CASE EVENT DATE: 20220101
